FAERS Safety Report 17822113 (Version 2)
Quarter: 2020Q3

REPORT INFORMATION
  Report Type: Spontaneous
  Country: PL (occurrence: PL)
  Receive Date: 20200526
  Receipt Date: 20200730
  Transmission Date: 20201102
  Serious: Yes (Other)
  Sender: FDA-Public Use
  Company Number: NVSC2020PL142413

PATIENT

DRUGS (5)
  1. JAKAVI [Suspect]
     Active Substance: RUXOLITINIB
     Indication: PRIMARY MYELOFIBROSIS
     Dosage: UNK
     Route: 065
     Dates: start: 201705
  2. ELTROMBOPAG [Suspect]
     Active Substance: ELTROMBOPAG
     Indication: PRODUCT USED FOR UNKNOWN INDICATION
     Dosage: UNK
     Route: 065
     Dates: start: 20200510
  3. EPOETIN ALFA [Suspect]
     Active Substance: ERYTHROPOIETIN
     Indication: PRODUCT USED FOR UNKNOWN INDICATION
     Dosage: UNK
     Route: 065
     Dates: start: 20180513, end: 20200120
  4. HYDROXYCARBAMID [Suspect]
     Active Substance: HYDROXYUREA
     Indication: PRIMARY MYELOFIBROSIS
     Route: 065
  5. PEGYLATED INTERFERON ALFA?2A [Suspect]
     Active Substance: PEGINTERFERON ALFA-2A
     Indication: PRODUCT USED FOR UNKNOWN INDICATION
     Dosage: UNK
     Route: 065
     Dates: start: 20180513, end: 20200120

REACTIONS (4)
  - Off label use [Unknown]
  - Primary myelofibrosis [Unknown]
  - Drug ineffective [Unknown]
  - Splenomegaly [Unknown]
